FAERS Safety Report 7534137-5 (Version None)
Quarter: 2011Q2

REPORT INFORMATION
  Report Type: 
  Country: None (occurrence: None)
  Receive Date: 20110608
  Receipt Date: 20061106
  Transmission Date: 20111010
  Serious: Yes (Death, Other)
  Sender: FDA-Public Use
  Company Number: PHFR2006GB03078

PATIENT
  Sex: Female

DRUGS (5)
  1. SULPIRIDE [Concomitant]
     Dosage: 200 MG, DAILY
  2. GABAPENTIN [Concomitant]
     Dosage: 300MG MANE + 600MG NOCTE
  3. CLOZAPINE [Suspect]
     Indication: SCHIZOPHRENIA
     Dosage: 225 MG MANE + 337.5MG NOCTE
     Route: 048
     Dates: start: 20000619
  4. VENLAFAXINE [Concomitant]
     Dosage: 225 MG, MANE
  5. HYOSCINE [Concomitant]
     Dosage: 300 MG, AT NIGHT

REACTIONS (18)
  - PULMONARY EMBOLISM [None]
  - CREPITATIONS [None]
  - PRODUCTIVE COUGH [None]
  - CEREBRAL ARTERIOSCLEROSIS [None]
  - CHEST X-RAY ABNORMAL [None]
  - ARTERIOSCLEROSIS CORONARY ARTERY [None]
  - PYREXIA [None]
  - CHRONIC OBSTRUCTIVE PULMONARY DISEASE [None]
  - DYSPNOEA [None]
  - DILATATION VENTRICULAR [None]
  - BRONCHOPNEUMONIA [None]
  - WHITE BLOOD CELL COUNT INCREASED [None]
  - NEUTROPHIL COUNT INCREASED [None]
  - LUNG DISORDER [None]
  - HAEMOGLOBIN DECREASED [None]
  - RIGHT VENTRICULAR HYPERTROPHY [None]
  - HEPATIC CONGESTION [None]
  - EMPHYSEMA [None]
